FAERS Safety Report 17456910 (Version 2)
Quarter: 2020Q3

REPORT INFORMATION
  Report Type: Spontaneous
  Country: JP (occurrence: JP)
  Receive Date: 20200225
  Receipt Date: 20200908
  Transmission Date: 20201102
  Serious: Yes (Other)
  Sender: FDA-Public Use
  Company Number: JP-CELGENEUS-JPN-20191110062

PATIENT
  Age: 77 Year
  Sex: Male
  Weight: 65 kg

DRUGS (8)
  1. VIDAZA [Suspect]
     Active Substance: AZACITIDINE
     Dosage: 137 MILLIGRAM
     Route: 041
     Dates: start: 20190711, end: 20190717
  2. VIDAZA [Suspect]
     Active Substance: AZACITIDINE
     Indication: PRODUCT USED FOR UNKNOWN INDICATION
     Dosage: 137 MILLIGRAM
     Route: 041
     Dates: start: 20190610, end: 20190616
  3. VIDAZA [Suspect]
     Active Substance: AZACITIDINE
     Dosage: 137 MILLIGRAM
     Route: 041
     Dates: start: 20191003, end: 20191009
  4. MAGNESIUM OXIDE. [Concomitant]
     Active Substance: MAGNESIUM OXIDE
     Indication: CONSTIPATION
     Dosage: 990 MILLIGRAM
     Route: 065
  5. FEBUXOSTAT. [Concomitant]
     Active Substance: FEBUXOSTAT
     Indication: HYPERURICAEMIA
     Dosage: 20 MILLIGRAM
     Route: 065
  6. BEZAFIBRATE [Concomitant]
     Active Substance: BEZAFIBRATE
     Indication: DYSLIPIDAEMIA
     Dosage: 200 MILLIGRAM
     Route: 065
  7. VIDAZA [Suspect]
     Active Substance: AZACITIDINE
     Dosage: 137 MILLIGRAM
     Route: 041
     Dates: start: 20190905, end: 20190911
  8. VIDAZA [Suspect]
     Active Substance: AZACITIDINE
     Dosage: 137 MILLIGRAM
     Route: 041
     Dates: start: 20190808, end: 20190814

REACTIONS (3)
  - Hypoaesthesia [Not Recovered/Not Resolved]
  - Muscular weakness [Not Recovered/Not Resolved]
  - Pain in extremity [Unknown]

NARRATIVE: CASE EVENT DATE: 20191003
